FAERS Safety Report 12332106 (Version 2)
Quarter: 2016Q4

REPORT INFORMATION
  Report Type: Spontaneous
  Country: US (occurrence: US)
  Receive Date: 20160504
  Receipt Date: 20161013
  Transmission Date: 20170207
  Serious: No
  Sender: FDA-Public Use
  Company Number: US-ROCHE-1642368

PATIENT
  Sex: Female
  Weight: 56.3 kg

DRUGS (13)
  1. LUTEIN [Concomitant]
     Active Substance: LUTEIN
  2. LORATADINE. [Concomitant]
     Active Substance: LORATADINE
  3. LUMIGAN [Concomitant]
     Active Substance: BIMATOPROST
  4. OXYGEN. [Concomitant]
     Active Substance: OXYGEN
  5. PREDNISONE. [Concomitant]
     Active Substance: PREDNISONE
  6. TRAMADOL. [Concomitant]
     Active Substance: TRAMADOL
  7. ESBRIET [Suspect]
     Active Substance: PIRFENIDONE
     Indication: IDIOPATHIC PULMONARY FIBROSIS
     Route: 048
     Dates: start: 20150912, end: 20151117
  8. TYLENOL PM [Concomitant]
     Active Substance: ACETAMINOPHEN\DIPHENHYDRAMINE
  9. ESBRIET [Suspect]
     Active Substance: PIRFENIDONE
     Dosage: 2 CAPSULES 3 TIMES A DAY
     Route: 048
     Dates: start: 20151118
  10. ALBUTEROL. [Concomitant]
     Active Substance: ALBUTEROL
  11. ESBRIET [Suspect]
     Active Substance: PIRFENIDONE
     Indication: RESPIRATORY DISORDER
     Dosage: 2 CAPSULES 3 TIMES A DAY
     Route: 048
  12. MELOXICAM. [Concomitant]
     Active Substance: MELOXICAM
  13. NEXIUM [Concomitant]
     Active Substance: ESOMEPRAZOLE MAGNESIUM
     Dosage: DRUG: NEXIUM DR
     Route: 065

REACTIONS (7)
  - Weight increased [Unknown]
  - Infection [Unknown]
  - White blood cell count decreased [Unknown]
  - Dysgeusia [Recovering/Resolving]
  - Decreased appetite [Recovering/Resolving]
  - Dyspnoea [Unknown]
  - Weight decreased [Recovering/Resolving]
